FAERS Safety Report 9091099 (Version 1)
Quarter: 2013Q1

REPORT INFORMATION
  Report Type: Report from Study
  Country: US (occurrence: US)
  Receive Date: 20130201
  Receipt Date: 20130201
  Transmission Date: 20140127
  Serious: No
  Sender: FDA-Public Use
  Company Number: US-ABBOTT-12P-163-1019125-00

PATIENT
  Age: 39 Year
  Sex: Female

DRUGS (6)
  1. HUMIRA [Suspect]
     Indication: CROHN^S DISEASE
     Dates: start: 20121010
  2. OXYCODONE [Concomitant]
     Indication: PAIN
     Dosage: 10-325MG EVERY 6 HOURS
  3. DEXAMETHASONE [Concomitant]
     Indication: PRODUCT USED FOR UNKNOWN INDICATION
  4. SILVER SULFADIAZINE [Concomitant]
     Indication: HIDRADENITIS
  5. NYSTATIN [Concomitant]
     Indication: HIDRADENITIS
     Route: 061
  6. BUPROPION [Concomitant]
     Indication: ANXIETY
     Dosage: DAILY

REACTIONS (7)
  - Contusion [Not Recovered/Not Resolved]
  - Injection site pain [Not Recovered/Not Resolved]
  - Back pain [Unknown]
  - Influenza [Unknown]
  - Oropharyngeal pain [Unknown]
  - Infection [Unknown]
  - Incorrect storage of drug [Unknown]
